FAERS Safety Report 10245010 (Version 1)
Quarter: 2014Q2

REPORT INFORMATION
  Report Type: Spontaneous
  Country: IT (occurrence: IT)
  Receive Date: 20140618
  Receipt Date: 20140618
  Transmission Date: 20141212
  Serious: Yes (Other)
  Sender: FDA-Public Use
  Company Number: IT-BAYER-2014-089471

PATIENT
  Age: 52 Year
  Sex: Female

DRUGS (3)
  1. KETOPROFEN (TOPICAL) [Suspect]
     Indication: BACK PAIN
     Dosage: UNK
     Dates: start: 20140428, end: 20140428
  2. DICLOFENAC [Concomitant]
     Dosage: UNK
  3. MUSCORIL [Concomitant]
     Dosage: UNK

REACTIONS (5)
  - Dyspnoea [Recovering/Resolving]
  - Eyelid oedema [Recovering/Resolving]
  - Lip oedema [Recovering/Resolving]
  - Tongue oedema [Recovering/Resolving]
  - Urticaria [Recovering/Resolving]
